FAERS Safety Report 21729293 (Version 2)
Quarter: 2023Q1

REPORT INFORMATION
  Report Type: Report from Study
  Country: US (occurrence: US)
  Receive Date: 20221214
  Receipt Date: 20230110
  Transmission Date: 20230417
  Serious: Yes (Hospitalization, Other)
  Sender: FDA-Public Use
  Company Number: US-GILEAD-2022-0608673

PATIENT
  Age: 62 Year
  Sex: Male
  Weight: 104 kg

DRUGS (21)
  1. BREXUCABTAGENE AUTOLEUCEL [Suspect]
     Active Substance: BREXUCABTAGENE AUTOLEUCEL
     Indication: Mantle cell lymphoma
     Dosage: 2 X 10^6 ANTI-CD19 CAR T CELLS PER KG
     Route: 065
     Dates: start: 20220411, end: 20220411
  2. FLUDARABINE [Suspect]
     Active Substance: FLUDARABINE PHOSPHATE
     Indication: Bone marrow conditioning regimen
     Dosage: ^67^ (UNITS NOT PROVIDED)
     Route: 065
     Dates: start: 20220406, end: 20220408
  3. CYCLOPHOSPHAMIDE [Suspect]
     Active Substance: CYCLOPHOSPHAMIDE
     Indication: Bone marrow conditioning regimen
     Dosage: ^1116^ (UNITS NOT PROVIDED)
     Route: 065
     Dates: start: 20220406, end: 20220408
  4. CYANOCOBALAMIN [Concomitant]
     Active Substance: CYANOCOBALAMIN
     Dosage: 100,OTHER,DAILY
     Route: 048
     Dates: start: 20211202, end: 20220425
  5. CHOLECALCIFEROL [Concomitant]
     Active Substance: CHOLECALCIFEROL
     Dosage: 50,MG,TWICE DAILY
     Route: 048
     Dates: start: 20211221, end: 20220425
  6. ACYCLOVIR [Concomitant]
     Active Substance: ACYCLOVIR
     Dosage: 400,MG,TWICE DAILY
     Route: 048
     Dates: start: 20220324
  7. LOPERAMIDE [Concomitant]
     Active Substance: LOPERAMIDE
     Dosage: 4,MG,OTHER
     Route: 048
     Dates: start: 20220410, end: 20220426
  8. TYLENOL [Concomitant]
     Active Substance: ACETAMINOPHEN
     Dosage: 650,MG,OTHER
     Route: 048
     Dates: start: 20220410, end: 20220426
  9. ATIVAN [Concomitant]
     Active Substance: LORAZEPAM
     Dosage: 1,MG,OTHER
     Route: 030
     Dates: start: 20220410, end: 20220426
  10. CEFEPIME [Concomitant]
     Active Substance: CEFEPIME HYDROCHLORIDE
     Dosage: 50,ML,OTHER
     Route: 042
     Dates: start: 20220412, end: 20220417
  11. DIBASIC POTASSIUM PHOSPHATE [Concomitant]
     Active Substance: DIBASIC POTASSIUM PHOSPHATE
     Dosage: 20,OTHER,ONCE
     Route: 042
     Dates: start: 20220412, end: 20220412
  12. TOCILIZUMAB [Concomitant]
     Active Substance: TOCILIZUMAB
     Dosage: 800,MG,ONCE
     Route: 042
     Dates: start: 20220413, end: 20220413
  13. TOCILIZUMAB [Concomitant]
     Active Substance: TOCILIZUMAB
     Dosage: 800,MG,ONCE
     Route: 042
     Dates: start: 20220415, end: 20220415
  14. DEXAMETHASONE [Concomitant]
     Active Substance: DEXAMETHASONE
     Dosage: 10,MG,ONCE
     Route: 042
     Dates: start: 20220413, end: 20220413
  15. DEXAMETHASONE [Concomitant]
     Active Substance: DEXAMETHASONE
     Dosage: 10,MG,ONCE
     Route: 042
     Dates: start: 20220415, end: 20220415
  16. POSACONAZOLE [Concomitant]
     Active Substance: POSACONAZOLE
     Dosage: 20,OTHER,ONCE
     Route: 042
     Dates: start: 20220418, end: 20220418
  17. ATOVAQUONE [Concomitant]
     Active Substance: ATOVAQUONE
     Dosage: 1500,MG,DAILY
     Route: 048
     Dates: start: 20220419, end: 20220426
  18. LEVETIRACETAM [Concomitant]
     Active Substance: LEVETIRACETAM
     Dosage: 1,500,MG,TWICE DAILY
     Route: 048
     Dates: start: 20220420, end: 20220424
  19. LEVOTHYROXINE [Concomitant]
     Active Substance: LEVOTHYROXINE
     Dosage: 150,OTHER,DAILY
     Route: 048
     Dates: start: 20220420, end: 20220426
  20. METHYLPREDNISOLONE [Concomitant]
     Active Substance: METHYLPREDNISOLONE
     Dosage: 250,MG,DAILY
     Route: 042
     Dates: start: 20220421, end: 20220421
  21. ZOSYN [Concomitant]
     Active Substance: PIPERACILLIN SODIUM\TAZOBACTAM SODIUM
     Dosage: 3.375,G,ONCE
     Route: 042
     Dates: start: 20220503, end: 20220506

REACTIONS (1)
  - Anal abscess [Recovered/Resolved]

NARRATIVE: CASE EVENT DATE: 20220503
